FAERS Safety Report 16653343 (Version 1)
Quarter: 2019Q3

REPORT INFORMATION
  Report Type: Other
  Country: FR (occurrence: FR)
  Receive Date: 20190731
  Receipt Date: 20190731
  Transmission Date: 20191004
  Serious: Yes (Other)
  Sender: FDA-Public Use
  Company Number: FR-ALSI-201900340

PATIENT
  Age: 35 Year
  Sex: Female
  Weight: 50 kg

DRUGS (2)
  1. NITROUS OXIDE. [Suspect]
     Active Substance: NITROUS OXIDE
     Route: 055
     Dates: start: 20180906, end: 20180906
  2. OXYGEN. [Suspect]
     Active Substance: OXYGEN
     Indication: PAIN
     Route: 055
     Dates: start: 20180906, end: 20180906

REACTIONS (2)
  - Drug abuse [Recovering/Resolving]
  - Sedation [Recovered/Resolved]
